FAERS Safety Report 6298285-2 (Version None)
Quarter: 2009Q3

REPORT INFORMATION
  Report Type: 
  Country: None (occurrence: None)
  Receive Date: 20090805
  Receipt Date: 20090730
  Transmission Date: 20100115
  Serious: Yes (Death, Life-Threatening, Hospitalization)
  Sender: FDA-Public Use
  Company Number: FR-ELI_LILLY_AND_COMPANY-FR200907006831

PATIENT
  Sex: Male

DRUGS (6)
  1. ALIMTA [Suspect]
     Indication: LUNG ADENOCARCINOMA
     Dosage: UNK, UNKNOWN
     Route: 042
     Dates: start: 20090417, end: 20090417
  2. PRIMPERAN /00041902/ [Concomitant]
     Dosage: UNK, UNKNOWN
     Route: 048
     Dates: start: 20090417, end: 20090422
  3. ONDANSETRON HCL [Concomitant]
     Dosage: UNK, UNKNOWN
     Route: 048
     Dates: start: 20090417, end: 20090419
  4. SOLUPRED [Concomitant]
     Dosage: UNK, UNKNOWN
     Route: 048
     Dates: start: 20090416, end: 20090418
  5. SPECIAFOLDINE [Concomitant]
     Indication: PROPHYLAXIS
     Dates: start: 20090408
  6. VITAMIN B-12 [Concomitant]
     Indication: PROPHYLAXIS
     Dates: start: 20090408

REACTIONS (3)
  - ACUTE PULMONARY OEDEMA [None]
  - DERMATITIS BULLOUS [None]
  - HYPERTHERMIA [None]
